FAERS Safety Report 18237160 (Version 1)
Quarter: 2020Q3

REPORT INFORMATION
  Report Type: Spontaneous
  Country: GB (occurrence: GB)
  Receive Date: 20200907
  Receipt Date: 20200907
  Transmission Date: 20201103
  Serious: Yes (Other)
  Sender: FDA-Public Use
  Company Number: GB-TEVA-2020-GB-1823279

PATIENT
  Age: 54 Year
  Sex: Male
  Weight: 85 kg

DRUGS (3)
  1. FLUTICASONE FUROATE [Concomitant]
     Active Substance: FLUTICASONE FUROATE
     Dosage: 1 DF
     Route: 055
     Dates: start: 20180109
  2. IBUPROFEN. [Suspect]
     Active Substance: IBUPROFEN
     Dosage: 200MG/5ML
     Route: 065
     Dates: start: 20200421
  3. VENTOLIN [Concomitant]
     Active Substance: ALBUTEROL SULFATE
     Dosage: 2 DF
     Route: 055
     Dates: start: 20161117

REACTIONS (2)
  - Swelling face [Recovered/Resolved]
  - Rash macular [Recovered/Resolved]
